FAERS Safety Report 8388582-9 (Version None)
Quarter: 2012Q2

REPORT INFORMATION
  Report Type: 
  Country: None (occurrence: None)
  Receive Date: 20120525
  Receipt Date: 20120515
  Transmission Date: 20120825
  Serious: Yes (Hospitalization)
  Sender: FDA-Public Use
  Company Number: US-TEVA-338087USA

PATIENT
  Sex: Male

DRUGS (12)
  1. FENTANYL-100 [Concomitant]
     Indication: HEADACHE
     Dosage: Q 3 DAYS
     Route: 062
     Dates: start: 20120507, end: 20120509
  2. LEVETIRACETAM [Concomitant]
     Indication: CONVULSION PROPHYLAXIS
     Dosage: BID
     Route: 048
  3. CLONAZEPAM [Concomitant]
     Indication: CONVULSION PROPHYLAXIS
     Dosage: Q4-6 PRN
     Route: 048
  4. VICODIN [Concomitant]
     Indication: HEADACHE
     Dosage: 10/325 MG, 1-2 Q4 HRS PRN
     Route: 048
     Dates: start: 20120209
  5. DULOXETINE HYDROCHLORIDE [Concomitant]
     Indication: DEPRESSION
     Dosage: 30 MILLIGRAM;
     Route: 048
     Dates: end: 20120501
  6. TRISENOX [Suspect]
     Indication: GLIOBLASTOMA MULTIFORME
     Dosage: BIWEEKLY FOR 7 WEEKS
     Route: 042
     Dates: start: 20120123, end: 20120308
  7. TEMAZEPAM [Concomitant]
     Indication: INSOMNIA
     Dosage: AT HS
     Route: 048
     Dates: start: 20120130, end: 20120406
  8. GABAPENTIN [Concomitant]
     Indication: HEADACHE
     Dosage: 2 TID
     Route: 048
     Dates: start: 20120201, end: 20120416
  9. CITALOPRAM HYDROBROMIDE [Concomitant]
     Indication: DEPRESSION
     Route: 048
     Dates: end: 20120509
  10. ESCITALOPRAM OXALATE [Concomitant]
     Indication: DEPRESSION
     Dosage: 10 MILLIGRAM;
     Route: 048
  11. METHYLPHENIDATE HCL [Concomitant]
     Indication: SOMNOLENCE
     Dosage: Q AM
     Route: 048
     Dates: start: 20120405, end: 20120509
  12. TEMOZOLOMIDE [Suspect]
     Indication: GLIOBLASTOMA MULTIFORME
     Dosage: DAILY X 5DAYS Q 28 DAYS
     Dates: start: 20120123

REACTIONS (1)
  - SYNCOPE [None]
